FAERS Safety Report 16057920 (Version 1)
Quarter: 2019Q1

REPORT INFORMATION
  Report Type: Spontaneous
  Country: US (occurrence: US)
  Receive Date: 20190311
  Receipt Date: 20190311
  Transmission Date: 20190418
  Serious: Yes (Death, Life-Threatening, Hospitalization)
  Sender: FDA-Public Use
  Company Number: US-FRESENIUS KABI-FK201902512

PATIENT
  Age: 63 Year
  Sex: Male
  Weight: 68.4 kg

DRUGS (14)
  1. MOMETASONE FUROATE. [Concomitant]
     Active Substance: MOMETASONE FUROATE
     Indication: PRODUCT USED FOR UNKNOWN INDICATION
     Route: 045
     Dates: start: 20180410
  2. ACETYLSALICYLIC ACID [Concomitant]
     Active Substance: ASPIRIN
     Indication: PRODUCT USED FOR UNKNOWN INDICATION
     Route: 065
     Dates: start: 20130705
  3. GABAPENTIN. [Concomitant]
     Active Substance: GABAPENTIN
     Indication: PRODUCT USED FOR UNKNOWN INDICATION
     Route: 065
     Dates: start: 200801
  4. DOCUSATE SODIUM. [Concomitant]
     Active Substance: DOCUSATE SODIUM
     Indication: PRODUCT USED FOR UNKNOWN INDICATION
     Route: 065
     Dates: start: 201301
  5. CARBOPLATIN (MANUFACTURER UNKNOWN) [Suspect]
     Active Substance: CARBOPLATIN
     Indication: SQUAMOUS CELL CARCINOMA OF HEAD AND NECK
     Dosage: Q3W
     Route: 042
     Dates: start: 20180501, end: 20180501
  6. ULMUS RUBRA [Concomitant]
     Indication: PRODUCT USED FOR UNKNOWN INDICATION
     Route: 065
     Dates: start: 20180430
  7. FLUOROURACIL. [Suspect]
     Active Substance: FLUOROURACIL
     Indication: SQUAMOUS CELL CARCINOMA OF HEAD AND NECK
     Dosage: DAYS 1-4, Q3W
     Route: 042
     Dates: start: 20180501, end: 20180505
  8. MORPHINE [Concomitant]
     Active Substance: MORPHINE
     Indication: PRODUCT USED FOR UNKNOWN INDICATION
     Route: 065
     Dates: start: 201001
  9. CETUXIMAB. [Suspect]
     Active Substance: CETUXIMAB
     Indication: SQUAMOUS CELL CARCINOMA OF HEAD AND NECK
     Dosage: ONCE
     Route: 042
     Dates: start: 20180501, end: 20180501
  10. PANTOPRAZOLE SODIUM SESQUIHYDRATE [Concomitant]
     Active Substance: PANTOPRAZOLE SODIUM
     Indication: PRODUCT USED FOR UNKNOWN INDICATION
     Route: 065
     Dates: start: 201201
  11. HYDROMORPHONE HYDROCHLORIDE. [Concomitant]
     Active Substance: HYDROMORPHONE HYDROCHLORIDE
     Indication: PRODUCT USED FOR UNKNOWN INDICATION
     Route: 065
     Dates: start: 201001
  12. METOPROLOL TARTRATE. [Concomitant]
     Active Substance: METOPROLOL TARTRATE
     Indication: PRODUCT USED FOR UNKNOWN INDICATION
     Route: 065
     Dates: start: 20130705
  13. SERTRALINE HYDROCHLORIDE. [Concomitant]
     Active Substance: SERTRALINE HYDROCHLORIDE
     Indication: PRODUCT USED FOR UNKNOWN INDICATION
     Route: 065
     Dates: start: 201001
  14. ERGOCALCIFEROL/ASCORBIC ACID/PYRIDOXINE HYDROCHLORIDE/BIOTIN/TOCOPHERYL ACETATE/FOLIC ACID/LINOLEIC [Concomitant]
     Indication: PRODUCT USED FOR UNKNOWN INDICATION
     Route: 048
     Dates: start: 20170831, end: 20190221

REACTIONS (3)
  - Localised oedema [Not Recovered/Not Resolved]
  - Febrile neutropenia [Not Recovered/Not Resolved]
  - Pneumonia aspiration [Not Recovered/Not Resolved]

NARRATIVE: CASE EVENT DATE: 20180505
